FAERS Safety Report 20882280 (Version 3)
Quarter: 2022Q3

REPORT INFORMATION
  Report Type: Spontaneous
  Country: JP (occurrence: JP)
  Receive Date: 20220527
  Receipt Date: 20220822
  Transmission Date: 20221027
  Serious: Yes (Death, Life-Threatening, Hospitalization, Other)
  Sender: FDA-Public Use
  Company Number: JP-ALXN-A202206098

PATIENT
  Age: 76 Year
  Sex: Male
  Weight: 46 kg

DRUGS (2)
  1. SOLIRIS [Suspect]
     Active Substance: ECULIZUMAB
     Dosage: 900 MG, Q2W
     Route: 042
     Dates: start: 20180307, end: 20220502
  2. SOLIRIS [Suspect]
     Active Substance: ECULIZUMAB
     Indication: Paroxysmal nocturnal haemoglobinuria
     Dosage: 600 MG, QW
     Route: 042
     Dates: start: 20180207, end: 20180228

REACTIONS (3)
  - Urosepsis [Fatal]
  - Paroxysmal nocturnal haemoglobinuria [Fatal]
  - Condition aggravated [Fatal]

NARRATIVE: CASE EVENT DATE: 20220418
